FAERS Safety Report 9071632 (Version 1)
Quarter: 2013Q1

REPORT INFORMATION
  Report Type: Spontaneous
  Country: US (occurrence: US)
  Receive Date: 20130129
  Receipt Date: 20130129
  Transmission Date: 20140127
  Serious: Yes (Hospitalization, Other)
  Sender: FDA-Public Use
  Company Number: US-GENZYME-POMP-1002719

PATIENT
  Age: 1 None
  Sex: Male
  Weight: 9.75 kg

DRUGS (4)
  1. MYOZYME [Suspect]
     Indication: GLYCOGEN STORAGE DISEASE TYPE II
     Dosage: 180 MG, Q2W
     Route: 042
     Dates: start: 20121114
  2. RITUXIMAB [Suspect]
     Indication: IMMUNOSUPPRESSION
     Dosage: 117.5 MG, 4X/W
     Dates: start: 20121127
  3. METHOTREXATE [Suspect]
     Indication: IMMUNOSUPPRESSION
     Dosage: 3.625 MG, Q2W X 3 DAYS
     Dates: start: 20121114
  4. IVIG [Suspect]
     Indication: IMMUNOSUPPRESSION
     Dosage: 5 G, Q4W
     Route: 042
     Dates: start: 20121114

REACTIONS (1)
  - Hyperparathyroidism secondary [Not Recovered/Not Resolved]
